FAERS Safety Report 4835917-7 (Version None)
Quarter: 2005Q4

REPORT INFORMATION
  Report Type: 
  Country: None (occurrence: None)
  Receive Date: 20051118
  Receipt Date: 20051111
  Transmission Date: 20060501
  Serious: Yes (Other)
  Sender: FDA-Public Use
  Company Number: 2005150250

PATIENT
  Sex: Female
  Weight: 62.5964 kg

DRUGS (2)
  1. LIPITOR [Suspect]
     Indication: BLOOD CHOLESTEROL INCREASED
     Dosage: 10 MG (10 MG, 1 IN 1 D)
  2. TOPROL (METOPROLOL) [Concomitant]

REACTIONS (4)
  - HYPERTENSION [None]
  - HYSTERECTOMY [None]
  - MUSCLE SPASMS [None]
  - MUSCULAR WEAKNESS [None]
